FAERS Safety Report 9484826 (Version 2)
Quarter: 2013Q3

REPORT INFORMATION
  Report Type: Spontaneous
  Country: JP (occurrence: JP)
  Receive Date: 20130828
  Receipt Date: 20130903
  Transmission Date: 20140515
  Serious: Yes (Other)
  Sender: FDA-Public Use
  Company Number: JP-GLAXOSMITHKLINE-B0917024A

PATIENT
  Age: 83 Year
  Sex: Female
  Weight: 59 kg

DRUGS (4)
  1. ARIXTRA [Suspect]
     Indication: PULMONARY EMBOLISM
     Dosage: 7.5MG PER DAY
     Route: 058
     Dates: start: 20130815, end: 20130818
  2. WARFARIN [Concomitant]
     Indication: PULMONARY EMBOLISM
     Dosage: 1IUAX THREE TIMES PER DAY
     Route: 048
     Dates: start: 20130815
  3. OMEPRAL [Concomitant]
     Dosage: 1IUAX TWICE PER DAY
     Route: 042
     Dates: start: 20130814, end: 20130816
  4. GASTER [Concomitant]
     Dosage: 1IUAX PER DAY
     Route: 048
     Dates: start: 20130816

REACTIONS (3)
  - Shock [Unknown]
  - Alanine aminotransferase increased [Recovered/Resolved]
  - Aspartate aminotransferase increased [Recovered/Resolved]
